FAERS Safety Report 18929957 (Version 1)
Quarter: 2021Q1

REPORT INFORMATION
  Report Type: Spontaneous
  Country: US (occurrence: US)
  Receive Date: 20210223
  Receipt Date: 20210223
  Transmission Date: 20210420
  Serious: Yes (Hospitalization, Other)
  Sender: FDA-Public Use
  Company Number: US-GLAXOSMITHKLINE-US2021GSK041424

PATIENT
  Age: 21 Year
  Sex: Female

DRUGS (2)
  1. PENICILLIN [Suspect]
     Active Substance: PENICILLIN
     Indication: PRODUCT USED FOR UNKNOWN INDICATION
     Dosage: UNK
  2. LAMOTRIGINE. [Suspect]
     Active Substance: LAMOTRIGINE
     Indication: PRODUCT USED FOR UNKNOWN INDICATION
     Dosage: UNK

REACTIONS (17)
  - Tachypnoea [Recovered/Resolved]
  - Hypotension [Recovered/Resolved]
  - Ill-defined disorder [Recovered/Resolved]
  - Human herpesvirus 6 infection [Unknown]
  - Drug reaction with eosinophilia and systemic symptoms [Recovered/Resolved]
  - Oropharyngeal pain [Recovered/Resolved]
  - Face oedema [Recovered/Resolved]
  - Pyrexia [Recovered/Resolved]
  - Vomiting [Recovered/Resolved]
  - Rash morbilliform [Recovered/Resolved]
  - Tachycardia [Recovered/Resolved]
  - Lymphadenopathy [Recovered/Resolved]
  - Transaminases increased [Recovered/Resolved]
  - Lip exfoliation [Recovered/Resolved]
  - Hepatosplenomegaly [Recovered/Resolved]
  - Lymphocyte morphology abnormal [Recovered/Resolved]
  - Rash [Recovered/Resolved]
